FAERS Safety Report 24112362 (Version 1)
Quarter: 2024Q3

REPORT INFORMATION
  Report Type: Report from Study
  Country: US (occurrence: None)
  Receive Date: 20240719
  Receipt Date: 20240719
  Transmission Date: 20241017
  Serious: Yes (Other)
  Sender: ASTRAZENECA
  Company Number: 2021A005484

PATIENT

DRUGS (3)
  1. SYMBICORT [Suspect]
     Active Substance: BUDESONIDE\FORMOTEROL FUMARATE DIHYDRATE
     Dosage: 160-4.5 MCG TWO PUFFS TWICE A DAY
     Route: 055
  2. IMPROPRIOIUM BROMIDE [Concomitant]
  3. SPIRIVA RESPIMATS [Concomitant]

REACTIONS (8)
  - Vocal cord polyp [Unknown]
  - Pulmonary mass [Unknown]
  - Stomatitis [Unknown]
  - Hypoxia [Unknown]
  - Gastrooesophageal reflux disease [Unknown]
  - Chronic obstructive pulmonary disease [Unknown]
  - Asthma [Unknown]
  - Oesophagitis [Unknown]
